FAERS Safety Report 8032675-2 (Version None)
Quarter: 2012Q1

REPORT INFORMATION
  Report Type: 
  Country: None (occurrence: None)
  Receive Date: 20120110
  Receipt Date: 20111118
  Transmission Date: 20120608
  Serious: No
  Sender: FDA-Public Use
  Company Number: US-COVIDIEN/TYCO HEALTHCARE/MALLINCKRODT-T201102736

PATIENT
  Sex: Female

DRUGS (3)
  1. OPTIRAY 160 [Suspect]
     Indication: ANGIOGRAM
     Dosage: 100 ML, SINGLE
     Route: 042
     Dates: start: 20111117, end: 20111117
  2. MEDROL [Concomitant]
     Indication: PREMEDICATION
     Dosage: UNK
     Dates: start: 20111101, end: 20111101
  3. BENADRYL [Concomitant]
     Indication: PREMEDICATION
     Dosage: 50 MG, SINGLE
     Route: 048
     Dates: start: 20111117, end: 20111117

REACTIONS (2)
  - DYSPNOEA [None]
  - CHEST DISCOMFORT [None]
